FAERS Safety Report 16360733 (Version 2)
Quarter: 2019Q2

REPORT INFORMATION
  Report Type: Spontaneous
  Country: CN (occurrence: CN)
  Receive Date: 20190528
  Receipt Date: 20190606
  Transmission Date: 20190711
  Serious: Yes (Death)
  Sender: FDA-Public Use
  Company Number: CN-BAYER-2019-102351

PATIENT
  Age: 64 Year
  Sex: Male

DRUGS (20)
  1. AMBROXOL [Concomitant]
     Active Substance: AMBROXOL
     Dosage: 30MG
     Dates: start: 20190502
  2. GLUCOSE [Concomitant]
     Active Substance: DEXTROSE
     Dosage: 100ML
     Dates: start: 20190504, end: 20190504
  3. AVELOX [Suspect]
     Active Substance: MOXIFLOXACIN HYDROCHLORIDE
     Indication: PNEUMONIA
     Dosage: 0.4 G, QD
     Route: 041
     Dates: start: 20190502, end: 20190504
  4. PANTOPRAZOLE [Concomitant]
     Active Substance: PANTOPRAZOLE
     Dosage: 80MG
     Dates: start: 20190502
  5. METHYLPREDNISOLONE;SUCCINIC ACID [Concomitant]
     Dosage: 80 MG
     Dates: start: 20190503
  6. POTASSIUM ASPARTATE [Concomitant]
     Active Substance: POTASSIUM ASPARTATE
     Dosage: 10ML
     Dates: start: 20190504, end: 20190504
  7. INSULIN [Concomitant]
     Active Substance: INSULIN NOS
     Dosage: UNK
     Dates: start: 20190503
  8. EPINEPHRINE. [Concomitant]
     Active Substance: EPINEPHRINE
     Dosage: 1MG
     Dates: start: 20190504, end: 20190504
  9. EPINEPHRINE. [Concomitant]
     Active Substance: EPINEPHRINE
     Dosage: 1MG
     Dates: start: 20190504, end: 20190504
  10. ATROPINE. [Concomitant]
     Active Substance: ATROPINE
     Dosage: 1MG
     Dates: start: 20190504, end: 20190504
  11. DOPAMINE [Concomitant]
     Active Substance: DOPAMINE\DOPAMINE HYDROCHLORIDE
     Dosage: 200MG
     Dates: start: 20190504, end: 20190504
  12. POTASSIUM ASPARTATE [Concomitant]
     Active Substance: POTASSIUM ASPARTATE
     Dosage: UNK
     Dates: start: 20190503
  13. EPINEPHRINE. [Concomitant]
     Active Substance: EPINEPHRINE
     Dosage: 1MG, 2 TIMES
     Dates: start: 20190504, end: 20190504
  14. AMIODARONE [Concomitant]
     Active Substance: AMIODARONE
     Dosage: 300MG
     Dates: start: 20190504, end: 20190504
  15. CEFTAZIDIME. [Concomitant]
     Active Substance: CEFTAZIDIME
     Dosage: 2 G
     Dates: start: 20190503
  16. PHOSPHOCREATINE [Concomitant]
     Active Substance: PHOSPHOCREATINE
     Dosage: 1 G
     Dates: start: 20190503
  17. NOREPINEPHRINE. [Concomitant]
     Active Substance: NOREPINEPHRINE
     Dosage: 18MG, SPEED REGULATION ACCORDING TO BLOOD PRESSURE
     Dates: start: 20190504, end: 20190504
  18. GLUCOSE [Concomitant]
     Active Substance: DEXTROSE
     Dosage: 20ML
     Dates: start: 20190504, end: 20190504
  19. AMIODARONE [Concomitant]
     Active Substance: AMIODARONE
     Dosage: 150MG
     Dates: start: 20190504, end: 20190504
  20. PHOSPHOCREATINE [Concomitant]
     Active Substance: PHOSPHOCREATINE
     Dosage: 1G
     Dates: start: 20190504, end: 20190504

REACTIONS (1)
  - Cardiopulmonary failure [Fatal]
